FAERS Safety Report 9745636 (Version 1)
Quarter: 2013Q4

REPORT INFORMATION
  Report Type: Spontaneous
  Country: US (occurrence: None)
  Receive Date: 20131205
  Receipt Date: 20131205
  Transmission Date: 20140711
  Serious: Yes (Life-Threatening, Hospitalization)
  Sender: FDA-Public Use
  Company Number: None

PATIENT
  Age: 64 Year
  Sex: Male
  Weight: 82.6 kg

DRUGS (12)
  1. XARELTO, 20 MG, JANSSEN PHARM [Suspect]
     Indication: ATRIAL FIBRILLATION
     Route: 048
     Dates: start: 20130801, end: 20131202
  2. ACETAMINOPHEN [Concomitant]
  3. ALLOPURINOL [Concomitant]
  4. CARVEDILOL [Concomitant]
  5. DIPHENHYDRAMINE [Concomitant]
  6. HYDROCHLOROTHIAZIDE [Concomitant]
  7. LISINOPRIL [Concomitant]
  8. METFORMIN [Concomitant]
  9. MULTIVITAMIN [Concomitant]
  10. NAPHAZOLINE/PHENIRAMINE [Concomitant]
  11. NITROGLYCERIN [Concomitant]
  12. OMEPRAZOLE [Concomitant]

REACTIONS (2)
  - Epistaxis [None]
  - International normalised ratio increased [None]
